FAERS Safety Report 5302536-8 (Version None)
Quarter: 2007Q2

REPORT INFORMATION
  Report Type: 
  Country: None (occurrence: None)
  Receive Date: 20070413
  Receipt Date: 20070405
  Transmission Date: 20071010
  Serious: Yes (Other)
  Sender: FDA-Public Use
  Company Number: S07-USA-01345-01

PATIENT
  Age: 66 Year
  Sex: Female

DRUGS (12)
  1. LEXAPRO [Suspect]
     Indication: ANXIETY
     Dosage: 10 MG QD PO
     Route: 048
     Dates: start: 20070313
  2. LEXAPRO [Suspect]
     Indication: DEPRESSION
     Dosage: 10 MG QD PO
     Route: 048
     Dates: start: 20070313
  3. HUMALOG [Concomitant]
  4. LANTUS [Concomitant]
  5. FOSAMAX [Concomitant]
  6. LISINOPRIL [Concomitant]
  7. SYNTHROID [Concomitant]
  8. ASPIRIN [Concomitant]
  9. TYLENOL [Concomitant]
  10. NEURONTIN [Concomitant]
  11. LIPITOR [Concomitant]
  12. LUNESTA [Concomitant]

REACTIONS (5)
  - BLOOD GLUCOSE DECREASED [None]
  - CONFUSIONAL STATE [None]
  - DIZZINESS [None]
  - GLYCOSYLATED HAEMOGLOBIN INCREASED [None]
  - NAUSEA [None]
